FAERS Safety Report 9520802 (Version 1)
Quarter: 2013Q1

REPORT INFORMATION
  Report Type: Spontaneous
  Country: US (occurrence: None)
  Receive Date: 20130305
  Receipt Date: 20130305
  Transmission Date: 20140127
  Serious: No
  Sender: FDA-Public Use
  Company Number: 163-21880-12070433

PATIENT
  Age: 56 Year
  Sex: Male

DRUGS (6)
  1. REVLIMID (LENALIDOMIDE) (CAPSULES) [Suspect]
     Indication: PLASMA CELL MYELOMA
     Dosage: 15MG, 1 IN 1D, PO
     Route: 048
     Dates: start: 20120501, end: 20120507
  2. ACYCLOVIR (ACICLOVIR) [Concomitant]
  3. OXYCODONE (OXYCODONE) [Concomitant]
  4. OXYCONTIN (OXYCODONE HYDROCHLORIDE) [Concomitant]
  5. PENICILLIN (PENICILLIN NOS) [Concomitant]
  6. VORICONAZOLE (VORICONAZOLE) [Concomitant]

REACTIONS (1)
  - Rash [None]
